FAERS Safety Report 19961359 (Version 2)
Quarter: 2022Q3

REPORT INFORMATION
  Report Type: Spontaneous
  Country: US (occurrence: US)
  Receive Date: 20211017
  Receipt Date: 20220912
  Transmission Date: 20221026
  Serious: Yes (Other)
  Sender: FDA-Public Use
  Company Number: US-SA-SAC20211012001464

PATIENT
  Age: 43 Year
  Sex: Male

DRUGS (1)
  1. ZANTAC [Suspect]
     Active Substance: RANITIDINE HYDROCHLORIDE
     Indication: Hyperchlorhydria
     Dosage: UNK, QD
     Route: 065
     Dates: start: 198501, end: 202005

REACTIONS (3)
  - Pancreatic carcinoma [Unknown]
  - Gallbladder cancer [Unknown]
  - Renal cancer stage IV [Unknown]

NARRATIVE: CASE EVENT DATE: 20000417
